FAERS Safety Report 7509690-8 (Version None)
Quarter: 2011Q2

REPORT INFORMATION
  Report Type: 
  Country: None (occurrence: None)
  Receive Date: 20110527
  Receipt Date: 20110520
  Transmission Date: 20111010
  Serious: Yes (Other)
  Sender: FDA-Public Use
  Company Number: US-PFIZER INC-2011110577

PATIENT
  Sex: Male
  Weight: 90.703 kg

DRUGS (8)
  1. IRON [Concomitant]
     Dosage: 325 MG, AS NEEDED, 2 TABLETS WEEKLY
     Route: 048
  2. SOMATULINE DEPOT [Suspect]
     Indication: ACROMEGALY
     Dosage: 60 MG, EVERY 28 DAYS
     Route: 058
     Dates: start: 20110406
  3. SYNTHROID [Concomitant]
     Dosage: 137 UG, 1X/DAY
     Route: 048
  4. TESTIM GEL [Concomitant]
     Dosage: 10 G, 1X/DAY
     Route: 061
  5. VITAMIN D [Concomitant]
     Dosage: 50000 IU, 1X/DAY FOR 2 WEEKS, THEN ONE WEEKLY FOR THE REMINDER OF 6 MONTHS
  6. ZOLOFT [Suspect]
     Dosage: UNK
     Route: 048
     Dates: start: 20110330, end: 20110412
  7. CORTEF [Concomitant]
     Dosage: 30 MG, 1X/DAY
     Route: 048
  8. LEXAPRO [Concomitant]
     Dosage: 5 MG, 1X/DAY
     Route: 048

REACTIONS (7)
  - MUSCLE SPASMS [None]
  - HEADACHE [None]
  - DEHYDRATION [None]
  - DIARRHOEA [None]
  - PALPITATIONS [None]
  - ABDOMINAL PAIN [None]
  - FATIGUE [None]
